FAERS Safety Report 6037806-1 (Version None)
Quarter: 2009Q1

REPORT INFORMATION
  Report Type: 
  Country: None (occurrence: None)
  Receive Date: 20090113
  Receipt Date: 20090102
  Transmission Date: 20090719
  Serious: Yes (Other)
  Sender: FDA-Public Use
  Company Number: 133350

PATIENT
  Age: 7 Year
  Sex: Male

DRUGS (7)
  1. EPIRUBICIN [Suspect]
     Indication: RHABDOMYOSARCOMA
     Dosage: 840 MG, 9 CYCLES,
  2. ETOPOSIDE [Suspect]
     Indication: RHABDOMYOSARCOMA
     Dosage: 1176 MG, 9 CYCLES;
  3. IFOSFAMIDE [Suspect]
     Indication: RHABDOMYOSARCOMA
     Dosage: 18480 MG, 9 CYCLES;
  4. DACTINOMYCIN [Suspect]
     Indication: RHABDOMYOSARCOMA
     Dosage: 2.52 MG, 9 CYCLES, INTRAVENOUS
     Route: 042
  5. THERAPEUTIC RADIOPHARMACEUTICALS [Suspect]
     Indication: DIAGNOSTIC PROCEDURE
  6. VINCRISTINE [Concomitant]
  7. CARBOPLATIN [Concomitant]

REACTIONS (1)
  - THYROID CANCER [None]
